FAERS Safety Report 24405511 (Version 1)
Quarter: 2024Q4

REPORT INFORMATION
  Report Type: Spontaneous
  Country: US (occurrence: None)
  Receive Date: 20241004
  Receipt Date: 20241004
  Transmission Date: 20250115
  Serious: Yes (unspecified)
  Sender: Public
  Company Number: None

PATIENT
  Age: 12 Year
  Sex: Male
  Weight: 45.4 kg

DRUGS (1)
  1. STELARA [Suspect]
     Active Substance: USTEKINUMAB
     Dosage: OTHER FREQUENCY : ONCE;?
     Route: 042
     Dates: start: 20231129, end: 20231129

REACTIONS (4)
  - Infusion related reaction [None]
  - Dyspnoea [None]
  - Cough [None]
  - Throat tightness [None]

NARRATIVE: CASE EVENT DATE: 20231129
